FAERS Safety Report 9351383 (Version 3)
Quarter: 2015Q3

REPORT INFORMATION
  Report Type: Spontaneous
  Country: BR (occurrence: BR)
  Receive Date: 20130617
  Receipt Date: 20150818
  Transmission Date: 20151125
  Serious: Yes (Other)
  Sender: FDA-Public Use
  Company Number: BR-PFIZER INC-2013176220

PATIENT
  Age: 62 Year
  Sex: Female
  Weight: 84 kg

DRUGS (4)
  1. OLMETEC [Suspect]
     Active Substance: OLMESARTAN MEDOXOMIL
     Dosage: 40 MG, DAILY
     Route: 048
  2. AMLODIPINE BESILATE [Suspect]
     Active Substance: AMLODIPINE BESYLATE
     Dosage: UNK
     Route: 048
  3. OLMETEC [Suspect]
     Active Substance: OLMESARTAN MEDOXOMIL
     Indication: HYPERTENSION
     Dosage: 20 MG (A HALF A TABLET) PER DAY
     Route: 048
     Dates: start: 2013, end: 20150724
  4. PURAN [Concomitant]
     Active Substance: LEVOTHYROXINE SODIUM
     Indication: HYPOTHYROIDISM
     Dosage: 50 MG (1 TABLET) 1X/DAY

REACTIONS (8)
  - Hypertensive crisis [Unknown]
  - Peripheral swelling [Unknown]
  - Pain [Unknown]
  - Blood pressure increased [Unknown]
  - Hypersensitivity [Unknown]
  - Stress [Unknown]
  - Blood pressure decreased [Unknown]
  - Weight increased [Unknown]

NARRATIVE: CASE EVENT DATE: 2012
